FAERS Safety Report 6180338-0 (Version None)
Quarter: 2009Q2

REPORT INFORMATION
  Report Type: 
  Country: None (occurrence: None)
  Receive Date: 20090504
  Receipt Date: 20090504
  Transmission Date: 20091009
  Serious: Yes (Hospitalization)
  Sender: FDA-Public Use
  Company Number: None

PATIENT
  Sex: Male

DRUGS (1)
  1. OTRIVIN [Suspect]
     Indication: NASAL CONGESTION
     Dosage: 2-3 APPLICATION PER DAY, NASAL
     Dates: start: 20090301, end: 20090420

REACTIONS (6)
  - ANXIETY [None]
  - DIZZINESS [None]
  - DRUG INEFFECTIVE [None]
  - PALPITATIONS [None]
  - PARAESTHESIA [None]
  - PSYCHOSOMATIC DISEASE [None]
